FAERS Safety Report 11139304 (Version 1)
Quarter: 2015Q2

REPORT INFORMATION
  Report Type: Spontaneous
  Country: GB (occurrence: GB)
  Receive Date: 20150527
  Receipt Date: 20150527
  Transmission Date: 20150821
  Serious: Yes (Other)
  Sender: FDA-Public Use
  Company Number: GB-TEVA-564660ACC

PATIENT
  Age: 97 Year

DRUGS (10)
  1. ASPIRIN. [Concomitant]
     Active Substance: ASPIRIN
     Dosage: 75 MILLIGRAM DAILY;
     Route: 048
  2. DIGOXIN. [Concomitant]
     Active Substance: DIGOXIN
     Dosage: 62.5 MICROGRAM DAILY;
     Route: 048
  3. FUROSEMIDE. [Concomitant]
     Active Substance: FUROSEMIDE
     Dosage: 80 MILLIGRAM DAILY; EVERY MORNING.
     Route: 048
  4. DOCUSATE [Concomitant]
     Active Substance: DOCUSATE
     Dosage: 400 MILLIGRAM DAILY;
     Route: 048
  5. OMEPRAZOLE. [Concomitant]
     Active Substance: OMEPRAZOLE
     Dosage: 20 MILLIGRAM DAILY;
     Route: 048
  6. LOSARTAN [Concomitant]
     Active Substance: LOSARTAN
     Dosage: 50 MILLIGRAM DAILY;
     Route: 048
  7. BENZYLPENICILLIN [Suspect]
     Active Substance: PENICILLIN G
     Dosage: 4.8 GRAM DAILY; 15 DOSES THEN DISCONTINUED.
     Route: 040
     Dates: start: 20150306
  8. CITALOPRAM [Concomitant]
     Active Substance: CITALOPRAM HYDROBROMIDE
     Dosage: 10 MILLIGRAM DAILY;
     Route: 048
  9. OXYBUTYNIN [Concomitant]
     Active Substance: OXYBUTYNIN
     Dosage: 10 MILLIGRAM DAILY;
     Route: 050
  10. LEVOFLOXACIN. [Suspect]
     Active Substance: LEVOFLOXACIN
     Dosage: 250 MILLIGRAM DAILY; 6 DOSES THEN DISCONTINUED.
     Route: 040
     Dates: start: 20150307

REACTIONS (3)
  - Angioedema [Recovering/Resolving]
  - Dysphagia [Recovering/Resolving]
  - Oral pain [Recovering/Resolving]
